FAERS Safety Report 7457443-1 (Version None)
Quarter: 2011Q2

REPORT INFORMATION
  Report Type: 
  Country: None (occurrence: None)
  Receive Date: 20110504
  Receipt Date: 20110421
  Transmission Date: 20111010
  Serious: No
  Sender: FDA-Public Use
  Company Number: US-B.I. PHARMACEUTICALS,INC./RIDGEFIELD-2011-BP-11439BP

PATIENT
  Sex: Female

DRUGS (4)
  1. TAURINE [Concomitant]
     Indication: SUPPLEMENTATION THERAPY
     Dosage: 3000 MG
  2. ATROVENT HFA [Suspect]
     Indication: CHRONIC OBSTRUCTIVE PULMONARY DISEASE
     Dosage: 68 MCG
     Route: 055
     Dates: start: 20110331
  3. ARGENINE [Concomitant]
     Indication: SUPPLEMENTATION THERAPY
     Dosage: 1000 MG
  4. COENZYME Q10 [Concomitant]
     Indication: SUPPLEMENTATION THERAPY
     Dosage: 300 MG

REACTIONS (4)
  - DIZZINESS [None]
  - OEDEMA PERIPHERAL [None]
  - URINARY RETENTION [None]
  - DRY MOUTH [None]
